FAERS Safety Report 6398675-3 (Version None)
Quarter: 2009Q4

REPORT INFORMATION
  Report Type: 
  Country: None (occurrence: None)
  Receive Date: 20091013
  Receipt Date: 20091009
  Transmission Date: 20100525
  Serious: Yes (Death, Other)
  Sender: FDA-Public Use
  Company Number: US-ASTRAZENECA-2009SE19166

PATIENT
  Age: 21 Year
  Sex: Male
  Weight: 97.5 kg

DRUGS (3)
  1. SEROQUEL XR [Suspect]
     Indication: AFFECTIVE DISORDER
     Route: 048
  2. SEROQUEL XR [Suspect]
     Route: 048
  3. SEROQUEL XR [Suspect]
     Dosage: 3 TABLETS
     Route: 048
     Dates: start: 20090613

REACTIONS (4)
  - ALCOHOL POISONING [None]
  - DIZZINESS [None]
  - FEELING ABNORMAL [None]
  - OVERDOSE [None]
